FAERS Safety Report 10960822 (Version 1)
Quarter: 2015Q1

REPORT INFORMATION
  Report Type: Spontaneous
  Country: US (occurrence: None)
  Receive Date: 20150326
  Receipt Date: 20150326
  Transmission Date: 20150721
  Serious: Yes (Other)
  Sender: FDA-Public Use
  Company Number: None

PATIENT
  Age: 47 Year
  Sex: Male

DRUGS (1)
  1. ISOVUE [Suspect]
     Active Substance: IOPAMIDOL
     Indication: SCAN WITH CONTRAST
     Route: 042
     Dates: start: 20150126

REACTIONS (5)
  - Nasal pruritus [None]
  - Ocular hyperaemia [None]
  - Eye pruritus [None]
  - Ear pruritus [None]
  - Contrast media reaction [None]

NARRATIVE: CASE EVENT DATE: 20150126
